FAERS Safety Report 4538613-9 (Version None)
Quarter: 2004Q4

REPORT INFORMATION
  Report Type: 
  Country: None (occurrence: None)
  Receive Date: 20041227
  Receipt Date: 20041111
  Transmission Date: 20050328
  Serious: Yes (Other)
  Sender: FDA-Public Use
  Company Number: JP-JNJFOC-20041201289

PATIENT
  Sex: Female

DRUGS (6)
  1. ITRIZOLE [Suspect]
     Indication: ONYCHOMYCOSIS
     Route: 049
  2. NIFEDIPINE [Concomitant]
     Indication: HYPERTENSION
     Route: 049
  3. CALCITRIOL [Concomitant]
     Indication: OSTEOPOROSIS
     Route: 049
  4. TOCOPHEROL CONCENTRATE CAP [Concomitant]
     Route: 049
  5. HACHIMI-JIO-GAN [Concomitant]
     Route: 049
  6. SHAKUYAKU-KANZO-TO [Concomitant]
     Route: 049

REACTIONS (4)
  - BLOOD CREATINE PHOSPHOKINASE INCREASED [None]
  - BLOOD LACTATE DEHYDROGENASE INCREASED [None]
  - HAEMOGLOBIN DECREASED [None]
  - OEDEMA PERIPHERAL [None]
